FAERS Safety Report 22400126 (Version 1)
Quarter: 2023Q2

REPORT INFORMATION
  Report Type: Spontaneous
  Country: US (occurrence: None)
  Receive Date: 20230601
  Receipt Date: 20230601
  Transmission Date: 20230721
  Serious: Yes (Other)
  Sender: FDA-Public Use
  Company Number: None

PATIENT
  Age: 57 Year
  Sex: Female
  Weight: 74.25 kg

DRUGS (1)
  1. TIAGABINE [Suspect]
     Active Substance: TIAGABINE
     Indication: Neuralgia
     Dates: start: 20230501, end: 20230506

REACTIONS (8)
  - Confusional state [None]
  - Dysphemia [None]
  - Fall [None]
  - Gait inability [None]
  - Speech disorder [None]
  - Tremor [None]
  - Drug titration error [None]
  - Therapy change [None]

NARRATIVE: CASE EVENT DATE: 20230506
